FAERS Safety Report 14439617 (Version 1)
Quarter: 2018Q1

REPORT INFORMATION
  Report Type: Spontaneous
  Country: US (occurrence: US)
  Receive Date: 20180125
  Receipt Date: 20180125
  Transmission Date: 20180509
  Serious: No
  Sender: FDA-Public Use
  Company Number: US-UNITED THERAPEUTICS-UNT-2017-014898

PATIENT
  Age: 71 Year
  Sex: Female
  Weight: 45.81 kg

DRUGS (3)
  1. LETAIRIS [Concomitant]
     Active Substance: AMBRISENTAN
     Indication: PRODUCT USED FOR UNKNOWN INDICATION
     Route: 065
  2. REMODULIN [Suspect]
     Active Substance: TREPROSTINIL
     Indication: PULMONARY ARTERIAL HYPERTENSION
     Dosage: 0.020 ?G/KG, CONTINUING
     Route: 058
  3. REMODULIN [Suspect]
     Active Substance: TREPROSTINIL
     Indication: PULMONARY HYPERTENSION
     Dosage: 0.012 ?G/KG, CONTINUING
     Route: 058
     Dates: start: 20170926

REACTIONS (15)
  - Weight decreased [Unknown]
  - Blood potassium abnormal [Unknown]
  - Psychiatric symptom [Unknown]
  - Anxiety [Unknown]
  - Feeling abnormal [Unknown]
  - Infusion site pain [Unknown]
  - Chronic obstructive pulmonary disease [Unknown]
  - Malaise [Unknown]
  - Fatigue [Unknown]
  - Sinus headache [Unknown]
  - Night sweats [Unknown]
  - Drug dose omission [Unknown]
  - Hypersensitivity [Unknown]
  - Dyspnoea [Unknown]
  - Product preparation error [Unknown]

NARRATIVE: CASE EVENT DATE: 2017
